FAERS Safety Report 7805630-2 (Version None)
Quarter: 2011Q4

REPORT INFORMATION
  Report Type: 
  Country: None (occurrence: None)
  Receive Date: 20111010
  Receipt Date: 20111006
  Transmission Date: 20120403
  Serious: Yes (Death)
  Sender: FDA-Public Use
  Company Number: US-ASTRAZENECA-2011SE59944

PATIENT
  Age: 46 Year
  Sex: Female

DRUGS (7)
  1. SEROQUEL XR [Suspect]
     Route: 048
     Dates: start: 20110817
  2. SEROQUEL XR [Suspect]
     Route: 048
  3. BENADRYL [Concomitant]
  4. PRESCTIC [Concomitant]
  5. CLONIPINE [Concomitant]
  6. SEROQUEL XR [Suspect]
     Route: 048
  7. TOMPOMAX [Concomitant]

REACTIONS (3)
  - ANXIETY DISORDER [None]
  - COMPLETED SUICIDE [None]
  - MAJOR DEPRESSION [None]
